FAERS Safety Report 10224830 (Version 5)
Quarter: 2015Q1

REPORT INFORMATION
  Report Type: Spontaneous
  Country: US (occurrence: US)
  Receive Date: 20140609
  Receipt Date: 20150115
  Transmission Date: 20150720
  Serious: Yes (Hospitalization, Other)
  Sender: FDA-Public Use
  Company Number: US-GLAXOSMITHKLINE-A1075489A

PATIENT
  Sex: Female
  Weight: 64 kg

DRUGS (16)
  1. COREG CR [Suspect]
     Active Substance: CARVEDILOL PHOSPHATE
     Dosage: 80 MG, UNK
     Dates: start: 201406
  2. ASPIRIN. [Concomitant]
     Active Substance: ASPIRIN
  3. MULTIVITAMIN [Concomitant]
     Active Substance: VITAMINS
  4. NORVASC [Concomitant]
     Active Substance: AMLODIPINE BESYLATE
  5. CARVEDILOL TABLET [Suspect]
     Active Substance: CARVEDILOL
     Indication: HYPERTENSION
     Dosage: 25 MG TABLETS TWICE PER DAY, TOTAL DAILY DOSE OF 50 MG.
     Route: 048
     Dates: end: 20140728
  6. MINOXIDIL. [Concomitant]
     Active Substance: MINOXIDIL
  7. VITAMIN B12 [Concomitant]
     Active Substance: CYANOCOBALAMIN
  8. COREG CR [Suspect]
     Active Substance: CARVEDILOL PHOSPHATE
     Indication: BLOOD PRESSURE
     Dates: start: 20090501
  9. COZAAR [Concomitant]
     Active Substance: LOSARTAN POTASSIUM
  10. FOLIC ACID. [Concomitant]
     Active Substance: FOLIC ACID
  11. PREDNISONE. [Concomitant]
     Active Substance: PREDNISONE
  12. CARVEDILOL TABLET [Suspect]
     Active Substance: CARVEDILOL
     Indication: CARDIAC DISORDER
     Dosage: 40 MG, UNK
  13. ACYCLOVIR. [Concomitant]
     Active Substance: ACYCLOVIR
  14. COENZYME Q10 [Concomitant]
     Active Substance: UBIDECARENONE
  15. DIGOXIN. [Concomitant]
     Active Substance: DIGOXIN
  16. METHOTREXATE [Concomitant]
     Active Substance: METHOTREXATE

REACTIONS (14)
  - Blood pressure increased [Unknown]
  - Drug intolerance [Unknown]
  - Cardiac pacemaker replacement [Recovered/Resolved]
  - Drug ineffective [Recovered/Resolved]
  - Influenza [Recovered/Resolved]
  - Fatigue [Recovered/Resolved]
  - Cardiac pacemaker insertion [Unknown]
  - Cardiac pacemaker insertion [Recovered/Resolved]
  - Blood pressure fluctuation [Recovered/Resolved]
  - Labile blood pressure [Not Recovered/Not Resolved]
  - Immune system disorder [Recovered/Resolved]
  - Hypertension [Unknown]
  - Cardiovascular disorder [Recovered/Resolved]
  - Malaise [Recovered/Resolved]
